FAERS Safety Report 5454056-8 (Version None)
Quarter: 2007Q3

REPORT INFORMATION
  Report Type: 
  Country: None (occurrence: None)
  Receive Date: 20070917
  Receipt Date: 20070228
  Transmission Date: 20080115
  Serious: Yes (Other)
  Sender: FDA-Public Use
  Company Number: US-ASTRAZENECA-2006UW06857

PATIENT
  Age: 49 Year
  Sex: Female
  Weight: 74.1 kg

DRUGS (6)
  1. SEROQUEL [Suspect]
     Indication: BIPOLAR DISORDER
     Route: 048
     Dates: start: 19980101, end: 20030101
  2. SEROQUEL [Suspect]
     Indication: ANXIETY
     Route: 048
     Dates: start: 19980101, end: 20030101
  3. RISPERDAL [Concomitant]
     Dates: start: 20020101
  4. ZYPREXA [Concomitant]
     Dates: start: 19990101, end: 20000101
  5. TRAZODONE HCL [Concomitant]
     Dates: start: 19980101
  6. MELLARIL [Concomitant]
     Dates: start: 19990101

REACTIONS (5)
  - BLOOD CHOLESTEROL INCREASED [None]
  - DIABETES MELLITUS [None]
  - DIABETIC KETOACIDOSIS [None]
  - HYPERGLYCAEMIA [None]
  - HYPERTRIGLYCERIDAEMIA [None]
